FAERS Safety Report 19067846 (Version 1)
Quarter: 2021Q1

REPORT INFORMATION
  Report Type: Other
  Country: DE (occurrence: DE)
  Receive Date: 20210329
  Receipt Date: 20210329
  Transmission Date: 20210420
  Serious: Yes (Death)
  Sender: FDA-Public Use
  Company Number: DE-ROCHE-2797786

PATIENT
  Age: 64 Year
  Sex: Male

DRUGS (3)
  1. MYCOPHENOLATE MOFETIL. [Suspect]
     Active Substance: MYCOPHENOLATE MOFETIL
     Indication: PROPHYLAXIS AGAINST TRANSPLANT REJECTION
     Route: 065
  2. TACROLIMUS. [Suspect]
     Active Substance: TACROLIMUS
     Indication: PROPHYLAXIS AGAINST TRANSPLANT REJECTION
     Dosage: TARGET TROUGH LEVEL IN POSTOPERATIVE WEEKS 1 TO 4, 6 TO 10 NG/ML; WEEKS 5 TO 8, 5 TO 8 NG/ML
     Route: 065
  3. METHYLPREDNISOLONE. [Concomitant]
     Active Substance: METHYLPREDNISOLONE
     Indication: HEPATECTOMY
     Route: 065

REACTIONS (1)
  - Hepatocellular carcinoma [Fatal]
